FAERS Safety Report 9644662 (Version 7)
Quarter: 2014Q1

REPORT INFORMATION
  Report Type: Report from Study
  Country: US (occurrence: US)
  Receive Date: 20131025
  Receipt Date: 20140213
  Transmission Date: 20141002
  Serious: Yes (Hospitalization)
  Sender: FDA-Public Use
  Company Number: US-JNJFOC-20131012473

PATIENT
  Age: 6 Year
  Sex: Male
  Weight: 19.2 kg

DRUGS (9)
  1. REMICADE [Suspect]
     Indication: INFLAMMATORY BOWEL DISEASE
     Route: 042
     Dates: start: 20100618
  2. METHOTREXATE [Suspect]
     Indication: INFLAMMATORY BOWEL DISEASE
     Route: 065
  3. BUDESONIDE [Concomitant]
     Indication: INFLAMMATORY BOWEL DISEASE
     Route: 065
  4. ERGOCALCIFEROL [Concomitant]
     Route: 065
  5. FOLIC ACID [Concomitant]
     Route: 065
  6. CALCIUM CARBONATE [Concomitant]
     Route: 065
  7. PROBIOTIC [Concomitant]
     Indication: INFLAMMATORY BOWEL DISEASE
     Route: 065
  8. WHEAT DEXTRIN [Concomitant]
     Route: 065
  9. BENEFIBER [Concomitant]
     Route: 065

REACTIONS (1)
  - Gastroenteritis salmonella [Recovered/Resolved]
